FAERS Safety Report 16690975 (Version 5)
Quarter: 2020Q3

REPORT INFORMATION
  Report Type: Spontaneous
  Country: US (occurrence: US)
  Receive Date: 20190812
  Receipt Date: 20200828
  Transmission Date: 20201102
  Serious: Yes (Hospitalization, Other)
  Sender: FDA-Public Use
  Company Number: US-ASTRAZENECA-2019SF12626

PATIENT
  Age: 578 Month
  Sex: Male
  Weight: 122.5 kg

DRUGS (70)
  1. MARCAINE [Concomitant]
     Active Substance: BUPIVACAINE HYDROCHLORIDE
     Dates: start: 20180419
  2. VERSED [Concomitant]
     Active Substance: MIDAZOLAM HYDROCHLORIDE
     Dates: start: 20180419
  3. SPIRIVA [Concomitant]
     Active Substance: TIOTROPIUM BROMIDE MONOHYDRATE
     Dates: start: 20190906
  4. LOPERAMIDE [Concomitant]
     Active Substance: LOPERAMIDE
     Dates: start: 20190430
  5. NAUZENE [Concomitant]
  6. ONDASETRON [Concomitant]
     Active Substance: ONDANSETRON
  7. LEVEMIR [Concomitant]
     Active Substance: INSULIN DETEMIR
  8. ZOFRAN [Concomitant]
     Active Substance: ONDANSETRON HYDROCHLORIDE
  9. CYMBALTA [Concomitant]
     Active Substance: DULOXETINE HYDROCHLORIDE
  10. KENALOG [Concomitant]
     Active Substance: TRIAMCINOLONE ACETONIDE
     Dates: start: 20180419
  11. ISOVUE [Concomitant]
     Active Substance: IOPAMIDOL
     Dates: start: 20180419
  12. COZAAR [Concomitant]
     Active Substance: LOSARTAN POTASSIUM
  13. BACLOFEN. [Concomitant]
     Active Substance: BACLOFEN
     Dates: start: 20191219
  14. HYDROCODONE BITARTRATE AND ACETAMINOPHEN [Concomitant]
     Active Substance: ACETAMINOPHEN\HYDROCODONE BITARTRATE
     Dates: start: 20190916
  15. DOCUSATE [Concomitant]
     Active Substance: DOCUSATE
  16. TIZANIDINE. [Concomitant]
     Active Substance: TIZANIDINE
  17. LYRICA [Concomitant]
     Active Substance: PREGABALIN
     Dates: start: 20190531
  18. NEURONTIN [Concomitant]
     Active Substance: GABAPENTIN
  19. ZESTRIL [Concomitant]
     Active Substance: LISINOPRIL
  20. REGLAN [Concomitant]
     Active Substance: METOCLOPRAMIDE HYDROCHLORIDE
     Dates: start: 20180419
  21. COLLAGENASE SANTYL [Concomitant]
     Active Substance: COLLAGENASE CLOSTRIDIUM HISTOLYTICUM
  22. BUSPIRONE [Concomitant]
     Active Substance: BUSPIRONE HYDROCHLORIDE
     Dates: start: 20200422
  23. ALBUTEROL. [Concomitant]
     Active Substance: ALBUTEROL
     Dates: start: 20200317
  24. ROBAXIN [Concomitant]
     Active Substance: METHOCARBAMOL
  25. MAGNESIUM CITRATE. [Concomitant]
     Active Substance: MAGNESIUM CITRATE
  26. VANCOMYCIN [Concomitant]
     Active Substance: VANCOMYCIN
  27. GLUCAGON. [Concomitant]
     Active Substance: GLUCAGON
  28. TYLENOL [Concomitant]
     Active Substance: ACETAMINOPHEN
  29. FARXIGA [Suspect]
     Active Substance: DAPAGLIFLOZIN PROPANEDIOL
     Indication: TYPE 2 DIABETES MELLITUS
     Dosage: 10.0MG UNKNOWN
     Route: 048
     Dates: start: 20190531
  30. FARXIGA [Suspect]
     Active Substance: DAPAGLIFLOZIN PROPANEDIOL
     Indication: TYPE 2 DIABETES MELLITUS
     Dosage: 10.0MG UNKNOWN
     Route: 048
     Dates: start: 20190226
  31. DILAUDID [Concomitant]
     Active Substance: HYDROMORPHONE HYDROCHLORIDE
  32. PROTONIX [Concomitant]
     Active Substance: PANTOPRAZOLE SODIUM
  33. MORPHIN [Concomitant]
     Active Substance: MORPHINE
     Dates: start: 20180419
  34. DRISDOL [Concomitant]
     Active Substance: ERGOCALCIFEROL
  35. INSULIN PEN [Concomitant]
     Active Substance: INSULIN NOS
     Dates: start: 20200317
  36. VICTOZA [Concomitant]
     Active Substance: LIRAGLUTIDE
     Dates: start: 20200114
  37. PREDNISONE. [Concomitant]
     Active Substance: PREDNISONE
     Dates: start: 20190430
  38. SENNOSIDES. [Concomitant]
     Active Substance: SENNOSIDES
  39. NALOXONE [Concomitant]
     Active Substance: NALOXONE
  40. LANTUS [Concomitant]
     Active Substance: INSULIN GLARGINE
     Dates: start: 20190226
  41. TRESIBA [Concomitant]
     Active Substance: INSULIN DEGLUDEC
  42. OMEPRAZOLE. [Concomitant]
     Active Substance: OMEPRAZOLE
  43. FARXIGA [Suspect]
     Active Substance: DAPAGLIFLOZIN PROPANEDIOL
     Indication: TYPE 2 DIABETES MELLITUS
     Dosage: 10.0MG UNKNOWN
     Route: 048
     Dates: start: 20200114
  44. LOVENOX [Concomitant]
     Active Substance: ENOXAPARIN SODIUM
  45. BENTYL [Concomitant]
     Active Substance: DICYCLOMINE HYDROCHLORIDE
  46. MOBIC [Concomitant]
     Active Substance: MELOXICAM
  47. OMEGA 3 [Concomitant]
     Active Substance: OMEGA-3 FATTY ACIDS
  48. NICOTINE. [Concomitant]
     Active Substance: NICOTINE
  49. BELSOMRA [Concomitant]
     Active Substance: SUVOREXANT
     Dates: start: 20200422
  50. LOSARTAN. [Concomitant]
     Active Substance: LOSARTAN
     Dates: start: 20200317
  51. VASCEPA [Concomitant]
     Active Substance: ICOSAPENT ETHYL
     Dates: start: 20190906
  52. CIPROFLOXACIN. [Concomitant]
     Active Substance: CIPROFLOXACIN
     Dates: start: 20190430
  53. METOPROLOL TARTRATE. [Concomitant]
     Active Substance: METOPROLOL TARTRATE
  54. MIDAZOLAM. [Concomitant]
     Active Substance: MIDAZOLAM
  55. DULOXETINE. [Concomitant]
     Active Substance: DULOXETINE
  56. NOVOLOG [Concomitant]
     Active Substance: INSULIN ASPART
     Dates: start: 20200114
  57. READI?CAT [Concomitant]
     Active Substance: BARIUM SULFATE
  58. LABETALOL [Concomitant]
     Active Substance: LABETALOL\LABETALOL HYDROCHLORIDE
     Dates: start: 20180419
  59. ASPIRIN. [Concomitant]
     Active Substance: ASPIRIN
     Dates: start: 20190226
  60. ERYTHROMYCIN. [Concomitant]
     Active Substance: ERYTHROMYCIN
  61. MECLIZINE [Concomitant]
     Active Substance: MECLIZINE HYDROCHLORIDE
  62. ACETAMINOPHEN?CODEINE [Concomitant]
     Active Substance: ACETAMINOPHEN\CODEINE PHOSPHATE
  63. ALOGLIPTIN. [Concomitant]
     Active Substance: ALOGLIPTIN
  64. AMITRIPTYLINE [Concomitant]
     Active Substance: AMITRIPTYLINE
  65. VALIUM [Concomitant]
     Active Substance: DIAZEPAM
  66. FARXIGA [Suspect]
     Active Substance: DAPAGLIFLOZIN PROPANEDIOL
     Indication: TYPE 2 DIABETES MELLITUS
     Route: 048
     Dates: start: 2016
  67. PEPCID [Concomitant]
     Active Substance: FAMOTIDINE
  68. LIPITOR [Concomitant]
     Active Substance: ATORVASTATIN CALCIUM
  69. SUBLIMAZE [Concomitant]
     Active Substance: FENTANYL CITRATE
     Dates: start: 20180419
  70. DICYCLOMINE [Concomitant]
     Active Substance: DICYCLOMINE HYDROCHLORIDE

REACTIONS (9)
  - Necrotising fasciitis [Unknown]
  - Renal tubular necrosis [Unknown]
  - Acute kidney injury [Unknown]
  - Renal injury [Unknown]
  - Sepsis [Unknown]
  - Leukocytosis [Unknown]
  - Groin infection [Unknown]
  - Fournier^s gangrene [Unknown]
  - Urinary tract infection [Unknown]

NARRATIVE: CASE EVENT DATE: 201707
